FAERS Safety Report 16000114 (Version 1)
Quarter: 2019Q1

REPORT INFORMATION
  Report Type: Spontaneous
  Country: US (occurrence: US)
  Receive Date: 20190129
  Receipt Date: 20190129
  Transmission Date: 20190418
  Serious: No
  Sender: FDA-Public Use
  Company Number: None

PATIENT
  Age: 32 Year
  Sex: Female

DRUGS (1)
  1. COPAXONE [Suspect]
     Active Substance: GLATIRAMER ACETATE
     Dates: start: 201808, end: 201901

REACTIONS (3)
  - Injection site bruising [None]
  - Haemorrhage [None]
  - Injection site pruritus [None]

NARRATIVE: CASE EVENT DATE: 20190128
